FAERS Safety Report 6507744-6 (Version None)
Quarter: 2009Q4

REPORT INFORMATION
  Report Type: 
  Country: None (occurrence: None)
  Receive Date: 20091221
  Receipt Date: 20091211
  Transmission Date: 20100525
  Serious: Yes (Other)
  Sender: FDA-Public Use
  Company Number: SG-PFIZER INC-2009309994

PATIENT
  Age: 64 Year

DRUGS (1)
  1. GLIPIZIDE [Suspect]

REACTIONS (3)
  - HYPOAESTHESIA [None]
  - LIP SWELLING [None]
  - MUSCULAR WEAKNESS [None]
